FAERS Safety Report 9761656 (Version 1)
Quarter: 2013Q4

REPORT INFORMATION
  Report Type: Spontaneous
  Country: IT (occurrence: IT)
  Receive Date: 20131216
  Receipt Date: 20131216
  Transmission Date: 20140711
  Serious: Yes (Other)
  Sender: FDA-Public Use
  Company Number: IT-ACTAVIS-2013-22614

PATIENT
  Age: 53 Year
  Sex: Female
  Weight: 49 kg

DRUGS (1)
  1. PACLITAXEL ACTAVIS [Suspect]
     Indication: UTERINE CANCER
     Dosage: 250 MG/CYCLIC
     Route: 042
     Dates: start: 20130910, end: 20131001

REACTIONS (1)
  - Paraesthesia [Recovering/Resolving]
